FAERS Safety Report 10496582 (Version 1)
Quarter: 2014Q4

REPORT INFORMATION
  Report Type: Report from Study
  Country: US (occurrence: US)
  Receive Date: 20141005
  Receipt Date: 20141005
  Transmission Date: 20150528
  Serious: Yes (Other)
  Sender: FDA-Public Use
  Company Number: PHEH2014US019597

PATIENT
  Sex: Female
  Weight: 48.53 kg

DRUGS (4)
  1. TOBI [Suspect]
     Active Substance: TOBRAMYCIN
     Indication: CYSTIC FIBROSIS
     Dosage: 300 MG PER 5 ML, BID
     Route: 055
  2. TOBI PODHALER [Suspect]
     Active Substance: TOBRAMYCIN
     Indication: CYSTIC FIBROSIS
     Dosage: 112 MG, BID
     Route: 055
  3. TOBI PODHALER [Suspect]
     Active Substance: TOBRAMYCIN
     Indication: ASTHMA
  4. TOBI [Suspect]
     Active Substance: TOBRAMYCIN
     Indication: ASTHMA

REACTIONS (3)
  - Pulmonary haemorrhage [Unknown]
  - Haemoptysis [Unknown]
  - Cough [Unknown]
